FAERS Safety Report 6662892-5 (Version None)
Quarter: 2010Q2

REPORT INFORMATION
  Report Type: 
  Country: None (occurrence: None)
  Receive Date: 20100401
  Receipt Date: 20100318
  Transmission Date: 20101027
  Serious: Yes (Death, Life-Threatening, Hospitalization, Disabling)
  Sender: FDA-Public Use
  Company Number: GB-RANBAXY-2010RR-32782

PATIENT
  Age: 63 Year
  Sex: Male

DRUGS (6)
  1. CHLORPROMAZINE [Suspect]
     Indication: DEPRESSION
     Dosage: 50 MG, TID
     Route: 048
  2. FLUOXETINE [Suspect]
     Indication: DEPRESSION
     Dosage: 60 MG, QD
     Route: 048
  3. ASPIRIN [Concomitant]
  4. ACETAMINOPHEN AND CODEINE PHOSPHATE [Concomitant]
  5. MIRTAZAPINE [Concomitant]
     Dosage: 30 MG, QD
  6. NAPROXEN [Concomitant]

REACTIONS (3)
  - ALVEOLITIS ALLERGIC [None]
  - DYSPNOEA [None]
  - NOSOCOMIAL INFECTION [None]
